FAERS Safety Report 8990550 (Version 1)
Quarter: 2012Q4

REPORT INFORMATION
  Report Type: Report from Study
  Country: AU (occurrence: AU)
  Receive Date: 20121228
  Receipt Date: 20121228
  Transmission Date: 20130627
  Serious: Yes (Hospitalization)
  Sender: FDA-Public Use
  Company Number: AU-BRISTOL-MYERS SQUIBB COMPANY-14552483

PATIENT
  Age: 55 Year
  Sex: Male

DRUGS (16)
  1. DASATINIB [Suspect]
     Indication: PROSTATE CANCER
     Dosage: Interrupted on 18Mar09.
     Route: 048
     Dates: start: 20090220
  2. TAXOTERE [Suspect]
     Indication: PROSTATE CANCER
     Dosage: Cycle 1 - 20Feb2009; last dose was 27-Apr-2009
     Route: 042
     Dates: start: 20090313, end: 20090313
  3. DEXAMETHASONE [Suspect]
     Indication: PREMEDICATION
     Dosage: Cycle 1 on 20Feb09
BID days -1,1+2
     Dates: start: 20090313, end: 20090313
  4. PREDNISONE [Suspect]
     Indication: PROSTATE CANCER
     Dosage: Cycle 1 on 20Feb09
     Dates: start: 20090313, end: 20090313
  5. SERETIDE [Concomitant]
  6. INTAL [Concomitant]
  7. COVERSYL [Concomitant]
  8. TRAMAL [Concomitant]
  9. ELIGARD [Concomitant]
  10. MOVICOL [Concomitant]
  11. PANADOL [Concomitant]
  12. NAVOBAN [Concomitant]
     Dates: start: 20090220, end: 20090313
  13. MAXOLON [Concomitant]
     Dates: start: 20090224, end: 20090313
  14. ZOFRAN [Concomitant]
     Dates: start: 20090226
  15. KYTRIL [Concomitant]
     Dates: start: 20090313
  16. STEMETIL [Concomitant]
     Dates: start: 20090313

REACTIONS (2)
  - Dehydration [Recovered/Resolved]
  - Pyrexia [Recovered/Resolved]
